FAERS Safety Report 19668136 (Version 1)
Quarter: 2021Q3

REPORT INFORMATION
  Report Type: Spontaneous
  Country: FR (occurrence: FR)
  Receive Date: 20210806
  Receipt Date: 20210806
  Transmission Date: 20211014
  Serious: Yes (Other)
  Sender: FDA-Public Use
  Company Number: FR-PFIZER INC-202100954633

PATIENT
  Age: 37 Year
  Sex: Female

DRUGS (5)
  1. ZOPICLONE [Suspect]
     Active Substance: ZOPICLONE
     Dosage: 52.5 MG IN TOTAL
     Route: 048
     Dates: start: 20210610, end: 20210610
  2. COCAINE [Suspect]
     Active Substance: COCAINE
     Dosage: UNK
     Route: 065
     Dates: start: 202106, end: 202106
  3. SERESTA [Suspect]
     Active Substance: OXAZEPAM
     Dosage: 15 DF IN TOTAL
     Route: 048
     Dates: start: 20210610, end: 20210610
  4. SUBUTEX [Suspect]
     Active Substance: BUPRENORPHINE HYDROCHLORIDE
     Indication: PRODUCT SUBSTITUTION
     Dosage: 12 DF IN TOTAL
     Route: 048
     Dates: start: 20210610, end: 20210610
  5. PREGABALIN. [Suspect]
     Active Substance: PREGABALIN
     Dosage: 900 MG IN TOTAL
     Route: 048
     Dates: start: 20210610, end: 20210610

REACTIONS (3)
  - Poisoning deliberate [Recovered/Resolved]
  - Overdose [Unknown]
  - Drug abuse [Not Recovered/Not Resolved]

NARRATIVE: CASE EVENT DATE: 20210610
